FAERS Safety Report 8411509-8 (Version None)
Quarter: 2012Q2

REPORT INFORMATION
  Report Type: 
  Country: None (occurrence: None)
  Receive Date: 20120605
  Receipt Date: 20120523
  Transmission Date: 20120825
  Serious: Yes (Other)
  Sender: FDA-Public Use
  Company Number: JP-CELGENEUS-087-50794-12053658

PATIENT
  Age: 80 Year
  Sex: Male
  Weight: 45 kg

DRUGS (22)
  1. VIDAZA [Suspect]
     Dosage: 75 MILLIGRAM/SQ. METER
     Route: 041
     Dates: start: 20110411, end: 20110417
  2. VIDAZA [Suspect]
     Dosage: 75 MILLIGRAM/SQ. METER
     Route: 041
     Dates: start: 20110620, end: 20110626
  3. CEFTAZIDIME [Concomitant]
     Route: 065
     Dates: start: 20110924, end: 20110929
  4. VIDAZA [Suspect]
     Dosage: 75 MILLIGRAM/SQ. METER
     Route: 041
     Dates: start: 20110516, end: 20110522
  5. FAMOTIDINE [Concomitant]
     Route: 065
  6. GRANISETRON HYDROCHLORIDE [Concomitant]
     Route: 065
     Dates: start: 20110314, end: 20110320
  7. SLOW-K [Concomitant]
     Route: 065
     Dates: start: 20110318, end: 20110323
  8. CEFTAZIDIME [Concomitant]
     Route: 065
     Dates: start: 20110325, end: 20110403
  9. ITRACONAZOLE [Concomitant]
     Route: 065
  10. LOXONIN [Concomitant]
     Route: 065
  11. VIDAZA [Suspect]
     Dosage: 75 MILLIGRAM/SQ. METER
     Route: 041
     Dates: start: 20110829, end: 20110904
  12. SELBEX [Concomitant]
     Route: 065
  13. GRANISETRON HYDROCHLORIDE [Concomitant]
     Route: 065
     Dates: start: 20110411, end: 20110417
  14. GRANISETRON HYDROCHLORIDE [Concomitant]
     Route: 065
     Dates: start: 20110516, end: 20110522
  15. CEFTAZIDIME [Concomitant]
     Route: 065
     Dates: start: 20110425, end: 20110509
  16. CEFEPIME DIHYDROCHLORIDE HYDRATE [Concomitant]
     Route: 065
     Dates: start: 20110929, end: 20111012
  17. TEGRETOL [Concomitant]
     Route: 065
     Dates: start: 20110928, end: 20111006
  18. VIDAZA [Suspect]
     Dosage: 75 MILLIGRAM/SQ. METER
     Route: 041
     Dates: start: 20110314, end: 20120320
  19. VIDAZA [Suspect]
     Dosage: 75 MILLIGRAM/SQ. METER
     Route: 041
     Dates: start: 20110726, end: 20110801
  20. CLARITHROMYCIN [Concomitant]
     Route: 065
  21. CEFTAZIDIME [Concomitant]
     Route: 065
     Dates: start: 20111013, end: 20111017
  22. LYRICA [Concomitant]
     Route: 065
     Dates: start: 20111006

REACTIONS (7)
  - FEBRILE NEUTROPENIA [None]
  - FACIAL PAIN [None]
  - NEUTROPENIA [None]
  - NEUTROPHIL COUNT DECREASED [None]
  - STOMATITIS [None]
  - SEPSIS [None]
  - PYREXIA [None]
